FAERS Safety Report 10676252 (Version 1)
Quarter: 2014Q4

REPORT INFORMATION
  Report Type: Spontaneous
  Country: BR (occurrence: BR)
  Receive Date: 20141226
  Receipt Date: 20141226
  Transmission Date: 20150529
  Serious: Yes (Hospitalization, Other)
  Sender: FDA-Public Use
  Company Number: BR-ROCHE-1513026

PATIENT
  Sex: Male
  Weight: 78 kg

DRUGS (1)
  1. RIVOTRIL [Suspect]
     Active Substance: CLONAZEPAM
     Indication: BIPOLAR DISORDER
     Dosage: A TABLET IN THE MORNING AND ONE AT NIGHT
     Route: 065
     Dates: start: 2009

REACTIONS (9)
  - Drug abuse [Unknown]
  - Alcoholism [Unknown]
  - Tonsillitis [Unknown]
  - Overdose [Unknown]
  - Nasal septum deviation [Unknown]
  - Hallucination [Recovering/Resolving]
  - Hypersomnia [Not Recovered/Not Resolved]
  - Treatment noncompliance [Unknown]
  - Nasal cyst [Unknown]

NARRATIVE: CASE EVENT DATE: 2012
